FAERS Safety Report 7126858-3 (Version None)
Quarter: 2010Q4

REPORT INFORMATION
  Report Type: 
  Country: None (occurrence: None)
  Receive Date: 20101129
  Receipt Date: 20091125
  Transmission Date: 20110411
  Serious: No
  Sender: FDA-Public Use
  Company Number: US-PFIZER INC-2009304357

PATIENT
  Sex: Male
  Weight: 81.6 kg

DRUGS (6)
  1. VIAGRA [Suspect]
     Indication: ERECTILE DYSFUNCTION
     Dosage: 25 MG, AS NEEDED
     Dates: start: 20080101, end: 20091125
  2. ACTOS [Concomitant]
     Dosage: 45 MG, UNK
  3. SIMVASTATIN [Concomitant]
     Dosage: 40 MG, UNK
  4. DOXAZOSIN [Concomitant]
     Dosage: 4 MG, UNK
  5. ZETIA [Concomitant]
     Dosage: 10 MG, UNK
  6. GABAPENTIN [Concomitant]
     Dosage: UNK

REACTIONS (1)
  - DRUG INEFFECTIVE [None]
